FAERS Safety Report 9631373 (Version 1)
Quarter: 2013Q4

REPORT INFORMATION
  Report Type: Spontaneous
  Country: US (occurrence: US)
  Receive Date: 20131018
  Receipt Date: 20131018
  Transmission Date: 20140711
  Serious: No
  Sender: FDA-Public Use
  Company Number: US-BAYER-2013-126386

PATIENT
  Age: 56 Year
  Sex: Female

DRUGS (1)
  1. GADAVIST [Suspect]
     Indication: NUCLEAR MAGNETIC RESONANCE IMAGING
     Dosage: 6 ML, ONCE
     Route: 042
     Dates: start: 20131017, end: 20131017

REACTIONS (1)
  - Urticaria [Recovered/Resolved]
